FAERS Safety Report 6549771-9 (Version None)
Quarter: 2010Q1

REPORT INFORMATION
  Report Type: 
  Country: None (occurrence: None)
  Receive Date: 20100125
  Receipt Date: 20100113
  Transmission Date: 20100710
  Serious: Yes (Other)
  Sender: FDA-Public Use
  Company Number: US-WYE-H13016810

PATIENT
  Age: 21 Year
  Sex: Male

DRUGS (2)
  1. ROBITUSSIN COUGH LONG ACTING [Suspect]
     Indication: EUPHORIC MOOD
     Dosage: UNKNOWN
     Route: 048
  2. ROBITUSSIN COUGH [Suspect]
     Indication: EUPHORIC MOOD
     Dosage: UNKNOWN
     Route: 048

REACTIONS (1)
  - DRUG DEPENDENCE [None]
